FAERS Safety Report 6108432-0 (Version None)
Quarter: 2009Q1

REPORT INFORMATION
  Report Type: 
  Country: None (occurrence: None)
  Receive Date: 20090309
  Receipt Date: 20090226
  Transmission Date: 20090719
  Serious: Yes (Hospitalization)
  Sender: FDA-Public Use
  Company Number: US-ELI_LILLY_AND_COMPANY-US200901003152

PATIENT
  Sex: Female
  Weight: 81.633 kg

DRUGS (4)
  1. EXENATIDE [Suspect]
     Indication: TYPE 2 DIABETES MELLITUS
     Dosage: 5 UG, 2/D
     Route: 058
     Dates: start: 20081223
  2. CYTOMEL [Concomitant]
     Indication: HYPOTHYROIDISM
     Dosage: 5 UG, DAILY (1/D)
     Route: 048
     Dates: start: 20080618
  3. SYNTHROID [Concomitant]
     Indication: HYPOTHYROIDISM
     Dosage: 37 UG/M2, DAILY (1/D)
     Route: 048
     Dates: start: 20070116
  4. GLUCOPHAGE [Concomitant]
     Indication: TYPE 2 DIABETES MELLITUS
     Dosage: 1000 MG, 2/D
     Route: 048
     Dates: start: 20070116

REACTIONS (1)
  - NEPHROLITHIASIS [None]
